FAERS Safety Report 18233918 (Version 2)
Quarter: 2020Q3

REPORT INFORMATION
  Report Type: Report from Study
  Country: US (occurrence: US)
  Receive Date: 20200904
  Receipt Date: 20200916
  Transmission Date: 20201103
  Serious: Yes (Other)
  Sender: FDA-Public Use
  Company Number: US-GILEAD-2020-0484923

PATIENT
  Age: 70 Year
  Sex: Male

DRUGS (2)
  1. IDELALISIB [Suspect]
     Active Substance: IDELALISIB
     Dosage: 150 MG, BID
     Route: 048
     Dates: start: 20160323
  2. IDELALISIB [Suspect]
     Active Substance: IDELALISIB
     Indication: CHRONIC LYMPHOCYTIC LEUKAEMIA
     Dosage: 150 MG, BID
     Route: 048
     Dates: start: 20150323

REACTIONS (6)
  - Platelet disorder [Unknown]
  - Neutropenia [Unknown]
  - Chronic lymphocytic leukaemia [Unknown]
  - White blood cell count decreased [Recovered/Resolved]
  - Pancytopenia [Unknown]
  - Neutrophil morphology abnormal [Unknown]

NARRATIVE: CASE EVENT DATE: 20200713
